FAERS Safety Report 4513095-1 (Version None)
Quarter: 2004Q4

REPORT INFORMATION
  Report Type: 
  Country: None (occurrence: None)
  Receive Date: 20040928
  Receipt Date: 20040628
  Transmission Date: 20050328
  Serious: No
  Sender: FDA-Public Use
  Company Number: 04P-163-0264917-00

PATIENT
  Age: 59 Year
  Sex: Female
  Weight: 65.7716 kg

DRUGS (8)
  1. HUMIRA [Suspect]
     Indication: RHEUMATOID ARTHRITIS
     Dosage: 40 MG, 1 IN 2 WK, SUBCUTANEOUS
     Route: 058
     Dates: start: 20040507
  2. HYDROXYCHLOROQUINE PHOSPHATE [Concomitant]
  3. BUCINDOLOL HYDROCHLORIDE [Concomitant]
  4. IBUPROFEN [Concomitant]
  5. MULTI-VITAMINS [Concomitant]
  6. TOCOPHEROL CONCENTRATE CAP [Concomitant]
  7. SOY PILLS [Concomitant]
  8. POTASSIUM [Concomitant]

REACTIONS (3)
  - PAIN [None]
  - PRURITUS GENERALISED [None]
  - RHINORRHOEA [None]
